FAERS Safety Report 5081126-9 (Version None)
Quarter: 2006Q3

REPORT INFORMATION
  Report Type: 
  Country: None (occurrence: None)
  Receive Date: 20060720
  Receipt Date: 20060111
  Transmission Date: 20061208
  Serious: Yes (Other)
  Sender: FDA-Public Use
  Company Number: 2006006848

PATIENT
  Sex: Female

DRUGS (6)
  1. CELEBREX [Suspect]
     Indication: BONE DISORDER
     Dosage: 400 MG (200 MG,2 IN 1 D)
     Dates: start: 20051101, end: 20051101
  2. IBUPROFEN [Concomitant]
  3. ALL OTHER THERAPEUTIC PRODUCTS (ALL OTHER THERAPEUTIC PRODUCTS) [Concomitant]
  4. PROPOXYPHENE HCL [Concomitant]
  5. ASPIRIN [Concomitant]
  6. ACETAMINOPHEN [Concomitant]

REACTIONS (1)
  - HYPERTENSION [None]
